FAERS Safety Report 8427613-4 (Version None)
Quarter: 2012Q2

REPORT INFORMATION
  Report Type: 
  Country: None (occurrence: None)
  Receive Date: 20120611
  Receipt Date: 20120529
  Transmission Date: 20120825
  Serious: No
  Sender: FDA-Public Use
  Company Number: US-ASTRAZENECA-2011SE52126

PATIENT
  Age: 85 Year
  Sex: Male
  Weight: 68 kg

DRUGS (4)
  1. NEXIUM [Suspect]
     Indication: DYSPEPSIA
     Route: 048
     Dates: start: 20060101
  2. NEXIUM [Suspect]
     Route: 048
  3. BP MEDICATION [Concomitant]
  4. NEXIUM [Suspect]
     Route: 048

REACTIONS (4)
  - ERUCTATION [None]
  - INTENTIONAL DRUG MISUSE [None]
  - OFF LABEL USE [None]
  - THERAPEUTIC RESPONSE DECREASED [None]
